FAERS Safety Report 8906967 (Version 1)
Quarter: 2012Q4

REPORT INFORMATION
  Report Type: 
  Country: FR (occurrence: FR)
  Receive Date: 20121114
  Receipt Date: 20121114
  Transmission Date: 20130627
  Serious: Yes (Hospitalization)
  Sender: FDA-Public Use
  Company Number: FR-ASTRAZENECA-2012SE84754

PATIENT
  Age: 15437 Day
  Sex: Female

DRUGS (2)
  1. MERONEM [Suspect]
     Indication: PNEUMONIA
     Route: 042
     Dates: start: 20120828
  2. PROPESS [Concomitant]
     Indication: GESTATIONAL HYPERTENSION
     Dates: start: 20120815

REACTIONS (2)
  - Drug reaction with eosinophilia and systemic symptoms [Recovered/Resolved]
  - Drug hypersensitivity [Recovered/Resolved]
